FAERS Safety Report 9336620 (Version 2)
Quarter: 2013Q3

REPORT INFORMATION
  Report Type: Spontaneous
  Country: US (occurrence: US)
  Receive Date: 20130607
  Receipt Date: 20130716
  Transmission Date: 20140515
  Serious: No
  Sender: FDA-Public Use
  Company Number: US-PFIZER INC-2013171868

PATIENT
  Sex: Female

DRUGS (2)
  1. LYRICA [Suspect]
     Indication: PAIN
     Dosage: 75 MG, UNK
     Route: 048
     Dates: start: 201302, end: 20130308
  2. LYRICA [Suspect]
     Dosage: 50 MG, UNK
     Route: 048
     Dates: start: 20130309, end: 201304

REACTIONS (6)
  - Drug intolerance [Unknown]
  - Feeling abnormal [Unknown]
  - Vertigo [Unknown]
  - Drug ineffective [Unknown]
  - Impaired work ability [Unknown]
  - Balance disorder [Unknown]
